FAERS Safety Report 8924840 (Version 2)
Quarter: 2013Q2

REPORT INFORMATION
  Report Type: Spontaneous
  Country: US (occurrence: US)
  Receive Date: 20121126
  Receipt Date: 20130517
  Transmission Date: 20140414
  Serious: Yes (Hospitalization)
  Sender: FDA-Public Use
  Company Number: US-BAYER-2012-121405

PATIENT
  Age: 35 Year
  Sex: Female
  Weight: 99.77 kg

DRUGS (8)
  1. YAZ [Suspect]
     Indication: DYSMENORRHOEA
     Dosage: UNK
     Dates: start: 201009, end: 201105
  2. YAZ [Suspect]
     Indication: DYSMENORRHOEA
     Dosage: UNK
     Dates: start: 201010, end: 201105
  3. GIANVI [Suspect]
     Indication: DYSMENORRHOEA
     Dosage: UNK
     Dates: start: 201009, end: 201105
  4. GIANVI [Suspect]
     Indication: DYSMENORRHOEA
     Dosage: UNK
     Dates: start: 201010, end: 201105
  5. ACETAMINOPHEN W/HYDROCODONE [Concomitant]
     Dosage: 5-500
  6. MULTIVITAMINS [Concomitant]
     Dosage: ONCE A DAY
  7. AZITHROMYCIN [Concomitant]
     Dosage: 250 MG, UNK
  8. FEMCON FE [Concomitant]

REACTIONS (8)
  - Pulmonary embolism [None]
  - Injury [None]
  - Pain [None]
  - General physical health deterioration [None]
  - Anxiety [None]
  - Emotional distress [None]
  - Pain [None]
  - Off label use [None]
